FAERS Safety Report 4919288-3 (Version None)
Quarter: 2006Q1

REPORT INFORMATION
  Report Type: 
  Country: None (occurrence: None)
  Receive Date: 20060216
  Receipt Date: 20060208
  Transmission Date: 20060701
  Serious: Yes (Other)
  Sender: FDA-Public Use
  Company Number: 2006020600

PATIENT
  Age: 40 Year
  Sex: Male
  Weight: 68.0396 kg

DRUGS (10)
  1. XANAX [Suspect]
     Indication: ANXIETY
     Dosage: 9 MG (3 MG, 3 IN 1 D), ORAL
     Route: 048
     Dates: start: 20050901, end: 20060101
  2. XANAX [Suspect]
     Indication: DEPRESSION
     Dosage: 9 MG (3 MG, 3 IN 1 D), ORAL
     Route: 048
     Dates: start: 20050901, end: 20060101
  3. ALPRAZOLAM [Suspect]
     Indication: ANXIETY
     Dosage: 2 MG, ORAL
     Route: 048
     Dates: start: 20050901, end: 20060101
  4. ALPRAZOLAM [Suspect]
     Indication: DEPRESSION
     Dosage: 2 MG, ORAL
     Route: 048
     Dates: start: 20050901, end: 20060101
  5. METHADONE HCL [Concomitant]
  6. TRAMADOL (TRAMADOL) [Concomitant]
  7. FUROSEMIDE [Concomitant]
  8. LORCET-HD [Concomitant]
  9. NORTRIPTYLINE (NORTRIPTYLINE) [Concomitant]
  10. ALL OTHER THERAPEUTIC PRODUCTS (ALL OTHER THERAPEUTIC PRODUCTS) [Concomitant]

REACTIONS (8)
  - ANAEMIA [None]
  - ANXIETY [None]
  - BONE PAIN [None]
  - CONDITION AGGRAVATED [None]
  - DEPRESSION [None]
  - GRAND MAL CONVULSION [None]
  - STRESS [None]
  - WEIGHT DECREASED [None]
